FAERS Safety Report 13215534 (Version 3)
Quarter: 2017Q4

REPORT INFORMATION
  Report Type: Spontaneous
  Country: US (occurrence: US)
  Receive Date: 20170210
  Receipt Date: 20171215
  Transmission Date: 20180320
  Serious: No
  Sender: FDA-Public Use
  Company Number: US-LUNDBECK-DKLU2025756

PATIENT
  Sex: Female

DRUGS (6)
  1. NORTHERA [Suspect]
     Active Substance: DROXIDOPA
     Route: 065
     Dates: end: 20170203
  2. NORTHERA [Suspect]
     Active Substance: DROXIDOPA
     Route: 065
  3. NORTHERA [Suspect]
     Active Substance: DROXIDOPA
     Indication: PRODUCT USED FOR UNKNOWN INDICATION
     Dosage: SCHEDULE B (TITRATING)
     Route: 048
     Dates: start: 20170117
  4. NORTHERA [Suspect]
     Active Substance: DROXIDOPA
     Route: 065
  5. NORTHERA [Suspect]
     Active Substance: DROXIDOPA
     Route: 048
  6. NORTHERA [Suspect]
     Active Substance: DROXIDOPA
     Route: 048

REACTIONS (9)
  - Dizziness [Unknown]
  - Chest pain [Unknown]
  - Hypotension [Unknown]
  - Blood pressure orthostatic increased [Recovering/Resolving]
  - Dyspnoea [Unknown]
  - Palpitations [Unknown]
  - Chest discomfort [Unknown]
  - Heart rate increased [Unknown]
  - Drug dose titration not performed [Unknown]
